FAERS Safety Report 8963916 (Version 3)
Quarter: 2013Q2

REPORT INFORMATION
  Report Type: Spontaneous
  Country: JP (occurrence: JP)
  Receive Date: 20121214
  Receipt Date: 20130402
  Transmission Date: 20140414
  Serious: Yes (Hospitalization)
  Sender: FDA-Public Use
  Company Number: JP-AMGEN-JPNSP2012079777

PATIENT
  Age: 82 Year
  Sex: Male
  Weight: 56 kg

DRUGS (10)
  1. VECTIBIX [Suspect]
     Indication: COLON CANCER
     Dosage: 396 MG, UNK
     Route: 041
     Dates: start: 20120416, end: 20120910
  2. VECTIBIX [Suspect]
     Dosage: 350 MG, UNK
     Route: 041
     Dates: start: 20121001, end: 20121112
  3. OXALIPLATIN [Concomitant]
     Indication: COLON CANCER
     Dosage: 145 MG, 2 TIMES IN 4 WEEKS
     Route: 041
     Dates: start: 20120322, end: 20120418
  4. OXALIPLATIN [Concomitant]
     Dosage: UNK, 2 TIMES IN 4 WEEKS
     Route: 041
     Dates: start: 20120529, end: 20120529
  5. IRINOTECAN HYDROCHLORIDE [Concomitant]
     Indication: COLON CANCER
     Dosage: 255 MG, UNK
     Route: 041
     Dates: start: 20120622, end: 20120622
  6. FLUOROURACIL [Concomitant]
     Indication: COLON CANCER
     Dosage: 4600 MG, 2 TIMES IN 4 WEEKS
     Route: 041
     Dates: start: 20120322, end: 20120418
  7. FLUOROURACIL [Concomitant]
     Dosage: UNK, 2 TIMES IN 4 WEEKS
     Route: 041
     Dates: start: 20120529, end: 20120529
  8. TS-1 [Concomitant]
     Indication: COLON CANCER
     Dosage: 100 MG, QD
     Route: 048
     Dates: start: 20121113, end: 20121126
  9. CALCIUM LEVOFOLINATE [Concomitant]
     Indication: COLON CANCER
     Dosage: 345 MG, 2 TIMES IN 4 WEEKS
     Route: 041
     Dates: start: 20120322, end: 20120418
  10. CALCIUM LEVOFOLINATE [Concomitant]
     Dosage: UNK, 2 TIMES IN 4 WEEKS
     Route: 041
     Dates: start: 20120529, end: 20120529

REACTIONS (1)
  - Interstitial lung disease [Recovered/Resolved]
